FAERS Safety Report 14152772 (Version 1)
Quarter: 2017Q4

REPORT INFORMATION
  Report Type: Spontaneous
  Country: CN (occurrence: CN)
  Receive Date: 20171102
  Receipt Date: 20171102
  Transmission Date: 20180321
  Serious: Yes (Hospitalization, Other)
  Sender: FDA-Public Use
  Company Number: CN-GLAXOSMITHKLINE-CN2017GSK165666

PATIENT
  Age: 53 Year
  Sex: Male

DRUGS (3)
  1. LAMIVUDINE. [Suspect]
     Active Substance: LAMIVUDINE
     Indication: ACQUIRED IMMUNODEFICIENCY SYNDROME
  2. EFAVIRENZ. [Suspect]
     Active Substance: EFAVIRENZ
  3. ZIDOVUDINE. [Suspect]
     Active Substance: ZIDOVUDINE

REACTIONS (10)
  - Hepatic cirrhosis [Recovering/Resolving]
  - Decreased appetite [Unknown]
  - Hepatic failure [Recovering/Resolving]
  - Drug resistance [Unknown]
  - Pathogen resistance [Unknown]
  - Ascites [Unknown]
  - Hepatic cirrhosis [Unknown]
  - Asthenia [Unknown]
  - Chromaturia [Unknown]
  - Hepatic function abnormal [Unknown]
